FAERS Safety Report 4595383-6 (Version None)
Quarter: 2005Q1

REPORT INFORMATION
  Report Type: 
  Country: None (occurrence: None)
  Receive Date: 20050225
  Receipt Date: 20050225
  Transmission Date: 20050727
  Serious: No
  Sender: FDA-Public Use
  Company Number: None

PATIENT
  Age: 74 Year
  Sex: Male
  Weight: 77.1115 kg

DRUGS (2)
  1. CIPROFLOXACIN [Suspect]
     Indication: PROSTATITIS
     Dosage: ONE BID
     Dates: start: 20050115, end: 20050125
  2. CIPROFLOXACIN [Suspect]
     Indication: URINARY TRACT INFECTION
     Dosage: ONE BID
     Dates: start: 20050115, end: 20050125

REACTIONS (7)
  - ABDOMINAL PAIN [None]
  - DIZZINESS [None]
  - EROSIVE OESOPHAGITIS [None]
  - FAECAL OCCULT BLOOD POSITIVE [None]
  - GASTRITIS EROSIVE [None]
  - HAEMATOCRIT DECREASED [None]
  - MELAENA [None]
